FAERS Safety Report 4808690-6 (Version None)
Quarter: 2005Q4

REPORT INFORMATION
  Report Type: 
  Country: None (occurrence: None)
  Receive Date: 20051021
  Receipt Date: 20011119
  Transmission Date: 20060501
  Serious: No
  Sender: FDA-Public Use
  Company Number: DE_011107376

PATIENT
  Age: 40 Year
  Sex: Female

DRUGS (1)
  1. ZYPREXA [Suspect]
     Indication: PSYCHOTIC DISORDER
     Dosage: 20 MG/DAY
     Dates: start: 20011024

REACTIONS (3)
  - EOSINOPHILIA [None]
  - HYPERSENSITIVITY [None]
  - TREATMENT NONCOMPLIANCE [None]
